FAERS Safety Report 17908230 (Version 2)
Quarter: 2020Q4

REPORT INFORMATION
  Report Type: Other
  Country: CA (occurrence: CA)
  Receive Date: 20200617
  Receipt Date: 20201020
  Transmission Date: 20210113
  Serious: Yes (Other)
  Sender: FDA-Public Use
  Company Number: CA-BECTON DICKINSON-2020BDN00164

PATIENT
  Age: 42 Year
  Sex: Female
  Weight: 81 kg

DRUGS (27)
  1. ACETAMINOPHEN. [Suspect]
     Active Substance: ACETAMINOPHEN
  2. LEFLUNOMIDE. [Suspect]
     Active Substance: LEFLUNOMIDE
     Route: 048
  3. ORENCIA [Suspect]
     Active Substance: ABATACEPT
  4. REACTINE [Concomitant]
  5. ARAVA [Suspect]
     Active Substance: LEFLUNOMIDE
  6. LEFLUNOMIDE. [Suspect]
     Active Substance: LEFLUNOMIDE
     Dosage: UNK
  7. IBUPROFEN. [Concomitant]
     Active Substance: IBUPROFEN
  8. METHOTREXATE. [Suspect]
     Active Substance: METHOTREXATE
  9. PREDNISONE. [Concomitant]
     Active Substance: PREDNISONE
  10. ZOPICLONE [Concomitant]
     Active Substance: ZOPICLONE
  11. CHLORHEXIDINE [Suspect]
     Active Substance: CHLORHEXIDINE
  12. OXYCODONE TEREPHTHALATE [Suspect]
     Active Substance: OXYCODONE TEREPHTHALATE
  13. CIMZIA [Suspect]
     Active Substance: CERTOLIZUMAB PEGOL
     Route: 058
  14. OXYCODONE [Suspect]
     Active Substance: OXYCODONE
  15. D-ALPHA TOCOPHEROL [Concomitant]
     Active Substance: .ALPHA.-TOCOPHEROL, D-
  16. HYDROXYCHLOROQUINE SULFATE. [Concomitant]
     Active Substance: HYDROXYCHLOROQUINE SULFATE
  17. OMEGA-3 ACIDS [Concomitant]
     Active Substance: OMEGA-3 FATTY ACIDS
  18. PANTOPRAZOLE [Concomitant]
     Active Substance: PANTOPRAZOLE
  19. ACTEMRA [Suspect]
     Active Substance: TOCILIZUMAB
  20. ENBREL [Suspect]
     Active Substance: ETANERCEPT
     Route: 058
  21. SIMPONI [Suspect]
     Active Substance: GOLIMUMAB
     Route: 058
  22. PANTOPRAZOLE SODIUM. [Concomitant]
     Active Substance: PANTOPRAZOLE SODIUM
  23. TYLENOL [Concomitant]
     Active Substance: ACETAMINOPHEN
  24. VENTOLIN [Concomitant]
     Active Substance: ALBUTEROL SULFATE
  25. HYDROXYCHLOROQUINE [Concomitant]
     Active Substance: HYDROXYCHLOROQUINE
  26. VITAMIN C [Concomitant]
     Active Substance: ASCORBIC ACID
  27. VITAMIN D3 [Concomitant]
     Active Substance: CHOLECALCIFEROL

REACTIONS (22)
  - Asthenia [Unknown]
  - Diarrhoea [Unknown]
  - Vomiting [Unknown]
  - Body temperature increased [Unknown]
  - Insomnia [Unknown]
  - Rash [Unknown]
  - Joint swelling [Unknown]
  - Ear pain [Unknown]
  - Incorrect route of product administration [Unknown]
  - Sinusitis [Unknown]
  - Urticaria [Unknown]
  - Abdominal pain upper [Unknown]
  - Back pain [Unknown]
  - Lower respiratory tract infection [Unknown]
  - Night sweats [Unknown]
  - Peripheral swelling [Unknown]
  - Pruritus [Unknown]
  - Respiratory disorder [Unknown]
  - Headache [Unknown]
  - Pain [Unknown]
  - Muscle spasticity [Unknown]
  - Off label use [Unknown]
